FAERS Safety Report 7628931-X (Version None)
Quarter: 2011Q3

REPORT INFORMATION
  Report Type: 
  Country: None (occurrence: None)
  Receive Date: 20110722
  Receipt Date: 20110721
  Transmission Date: 20111222
  Serious: Yes (Other)
  Sender: FDA-Public Use
  Company Number: JP-B.I. PHARMACEUTICALS,INC./RIDGEFIELD-2011-BP-16680NB

PATIENT
  Age: 65 Year
  Sex: Male

DRUGS (15)
  1. PRADAXA [Suspect]
     Indication: ATRIAL FIBRILLATION
     Dosage: 300 MG
     Route: 048
     Dates: start: 20110607, end: 20110628
  2. DIAZEPAM [Concomitant]
  3. GANATON [Concomitant]
  4. LANIRAPID [Concomitant]
  5. ALPRAZOLAM [Concomitant]
  6. LIPIDIL [Concomitant]
  7. BETAMETHASONE [Concomitant]
  8. ZOLOFT [Concomitant]
  9. DORAL [Concomitant]
  10. LANSOPRAZOLE [Concomitant]
  11. ATARAX [Concomitant]
  12. RISLAMID [Concomitant]
  13. ZETIA [Concomitant]
  14. HALCION [Concomitant]
  15. SELBEX [Concomitant]

REACTIONS (2)
  - URINARY BLADDER HAEMORRHAGE [None]
  - BLADDER CANCER [None]
